FAERS Safety Report 6811859-2 (Version None)
Quarter: 2010Q2

REPORT INFORMATION
  Report Type: 
  Country: None (occurrence: None)
  Receive Date: 20100628
  Receipt Date: 20100609
  Transmission Date: 20101027
  Serious: Yes (Other)
  Sender: FDA-Public Use
  Company Number: BVT-000564

PATIENT

DRUGS (1)
  1. KINERET [Suspect]
     Indication: JUVENILE ARTHRITIS

REACTIONS (1)
  - HISTIOCYTOSIS HAEMATOPHAGIC [None]
